FAERS Safety Report 23846096 (Version 4)
Quarter: 2024Q3

REPORT INFORMATION
  Report Type: Spontaneous
  Country: US (occurrence: US)
  Receive Date: 20240512
  Receipt Date: 20240930
  Transmission Date: 20241017
  Serious: No
  Sender: TRAVERE THERAPEUTICS
  Company Number: US-TRAVERE-2024TVT00432

PATIENT
  Age: 69 Year
  Sex: Male

DRUGS (9)
  1. FILSPARI [Suspect]
     Active Substance: SPARSENTAN
     Indication: IgA nephropathy
     Dosage: NDC NUMBER: 68974020030
     Route: 048
     Dates: start: 20240406
  2. FILSPARI [Suspect]
     Active Substance: SPARSENTAN
     Indication: Haematuria
     Route: 048
     Dates: end: 202408
  3. FARXIGA [Suspect]
     Active Substance: DAPAGLIFLOZIN PROPANEDIOL
     Indication: Product used for unknown indication
  4. CALCITRIOL [Concomitant]
     Active Substance: CALCITRIOL
  5. ATORVASTATIN CALCIUM [Concomitant]
     Active Substance: ATORVASTATIN CALCIUM
  6. SERTRALINE HYDROCHLORIDE [Concomitant]
     Active Substance: SERTRALINE HYDROCHLORIDE
  7. OMEGA-3 ACIDS [Concomitant]
     Active Substance: OMEGA-3 FATTY ACIDS
  8. INFLIXIMAB [Concomitant]
     Active Substance: INFLIXIMAB
  9. VITAMIN D3 [Concomitant]
     Active Substance: CHOLECALCIFEROL

REACTIONS (2)
  - Hypotension [None]
  - Hypoparathyroidism [Unknown]
